FAERS Safety Report 6719792-1 (Version None)
Quarter: 2010Q2

REPORT INFORMATION
  Report Type: 
  Country: None (occurrence: None)
  Receive Date: 20100511
  Receipt Date: 20100504
  Transmission Date: 20101027
  Serious: Yes (Hospitalization)
  Sender: FDA-Public Use
  Company Number: B0652116A

PATIENT
  Sex: Female

DRUGS (5)
  1. TYVERB [Suspect]
     Indication: BREAST CANCER
     Dosage: 1250MG PER DAY
     Route: 065
     Dates: start: 20100105
  2. CAPECITABINE [Suspect]
     Route: 065
  3. POLYCHEMOTHERAPY [Concomitant]
  4. RADIOTHERAPY [Concomitant]
  5. HORMONAL THERAPY [Concomitant]

REACTIONS (3)
  - DECREASED APPETITE [None]
  - PALMAR-PLANTAR ERYTHRODYSAESTHESIA SYNDROME [None]
  - PARONYCHIA [None]
